FAERS Safety Report 24739516 (Version 3)
Quarter: 2025Q1

REPORT INFORMATION
  Report Type: Spontaneous
  Country: DK (occurrence: DK)
  Receive Date: 20241216
  Receipt Date: 20250304
  Transmission Date: 20250409
  Serious: Yes (Hospitalization, Other)
  Sender: NOVARTIS
  Company Number: DK-002147023-NVSC2024DK216635

PATIENT
  Age: 33 Year
  Sex: Male
  Weight: 66 kg

DRUGS (2)
  1. KESIMPTA [Suspect]
     Active Substance: OFATUMUMAB
     Indication: Relapsing multiple sclerosis
     Dosage: UNK, Q4W (EVERY 4TH WEEKS)
     Route: 058
     Dates: start: 20240121, end: 20240924
  2. KESIMPTA [Suspect]
     Active Substance: OFATUMUMAB
     Route: 065
     Dates: start: 20240205

REACTIONS (5)
  - Cough [Unknown]
  - Pyrexia [Unknown]
  - Neutropenia [Unknown]
  - Weight decreased [Unknown]
  - Malaise [Unknown]
